FAERS Safety Report 6113066-8 (Version None)
Quarter: 2009Q1

REPORT INFORMATION
  Report Type: 
  Country: None (occurrence: None)
  Receive Date: 20090312
  Receipt Date: 20090226
  Transmission Date: 20090719
  Serious: Yes (Other)
  Sender: FDA-Public Use
  Company Number: JP-PFIZER INC-2009179306

PATIENT

DRUGS (7)
  1. REVATIO [Suspect]
     Indication: PULMONARY HYPERTENSION
     Dosage: FREQUENCY: 2X/DAY,
     Route: 048
     Dates: start: 20080826, end: 20080925
  2. BUFFERIN [Concomitant]
     Dosage: UNK
     Route: 048
  3. BERAPROST SODIUM [Concomitant]
     Indication: PULMONARY HYPERTENSION
     Dosage: UNK
     Route: 048
  4. TRACLEER [Concomitant]
     Indication: PULMONARY HYPERTENSION
     Dosage: UNK
     Route: 048
  5. PRANLUKAST HYDRATE [Concomitant]
     Indication: ASTHMA
     Dosage: UNK
     Route: 048
  6. MAGNESIUM OXIDE [Concomitant]
     Indication: CONSTIPATION
     Dosage: UNK
     Route: 048
  7. OXYGEN [Concomitant]
     Indication: PULMONARY HYPERTENSION

REACTIONS (1)
  - TINNITUS [None]
